FAERS Safety Report 20120088 (Version 16)
Quarter: 2025Q3

REPORT INFORMATION
  Report Type: Report from Study
  Country: US (occurrence: US)
  Receive Date: 20211126
  Receipt Date: 20250901
  Transmission Date: 20251020
  Serious: Yes (Hospitalization, Other)
  Sender: TAKEDA
  Company Number: US-TAKEDA-2021TUS074872

PATIENT
  Age: 15 Year
  Sex: Male

DRUGS (10)
  1. ADVATE [Suspect]
     Active Substance: ANTIHEMOPHILIC FACTOR, HUMAN RECOMBINANT
     Indication: Haemorrhage
  2. ADVATE [Suspect]
     Active Substance: ANTIHEMOPHILIC FACTOR, HUMAN RECOMBINANT
  3. ADVATE [Suspect]
     Active Substance: ANTIHEMOPHILIC FACTOR, HUMAN RECOMBINANT
     Dosage: 1800 INTERNATIONAL UNIT, QD
  4. ADVATE [Suspect]
     Active Substance: ANTIHEMOPHILIC FACTOR, HUMAN RECOMBINANT
     Dosage: 3600 INTERNATIONAL UNIT, QD
  5. ADVATE [Suspect]
     Active Substance: ANTIHEMOPHILIC FACTOR, HUMAN RECOMBINANT
  6. ADVATE [Suspect]
     Active Substance: ANTIHEMOPHILIC FACTOR, HUMAN RECOMBINANT
  7. ADVATE [Suspect]
     Active Substance: ANTIHEMOPHILIC FACTOR, HUMAN RECOMBINANT
  8. ADVATE [Suspect]
     Active Substance: ANTIHEMOPHILIC FACTOR, HUMAN RECOMBINANT
  9. ADVATE [Suspect]
     Active Substance: ANTIHEMOPHILIC FACTOR, HUMAN RECOMBINANT
  10. ADVATE [Suspect]
     Active Substance: ANTIHEMOPHILIC FACTOR, HUMAN RECOMBINANT

REACTIONS (11)
  - Thermal burn [Recovering/Resolving]
  - Haemarthrosis [Recovering/Resolving]
  - Haemorrhage [Recovered/Resolved]
  - Muscle haemorrhage [Not Recovered/Not Resolved]
  - Skin laceration [Unknown]
  - Head injury [Unknown]
  - Pain [Not Recovered/Not Resolved]
  - Peripheral swelling [Unknown]
  - Pain in extremity [Unknown]
  - Joint injury [Unknown]
  - Limb injury [Unknown]

NARRATIVE: CASE EVENT DATE: 20211109
